FAERS Safety Report 9165437 (Version 6)
Quarter: 2013Q3

REPORT INFORMATION
  Report Type: Spontaneous
  Country: US (occurrence: US)
  Receive Date: 20130315
  Receipt Date: 20130823
  Transmission Date: 20140515
  Serious: Yes (Other)
  Sender: FDA-Public Use
  Company Number: US-009507513-1303USA007254

PATIENT
  Age: 48 Year
  Sex: Male

DRUGS (10)
  1. VICTRELIS [Suspect]
     Indication: CHRONIC HEPATITIS C
     Dosage: UNK UNK, TID
     Route: 065
     Dates: end: 20130403
  2. PEGASYS [Suspect]
     Indication: CHRONIC HEPATITIS C
     Dosage: 180 MICROGRAM, QW
     Route: 065
     Dates: start: 20130121
  3. RIBASPHERE [Suspect]
     Indication: CHRONIC HEPATITIS C
     Dosage: 1200 MG DAILY
     Route: 065
     Dates: start: 20130121
  4. TELAPREVIR [Suspect]
     Indication: CHRONIC HEPATITIS C
     Dosage: 2 DF, TID
     Route: 065
     Dates: start: 20130403, end: 20130614
  5. NORVASC [Concomitant]
     Indication: HYPERTENSION
  6. NORVASC [Concomitant]
     Indication: DEPRESSION
  7. CELEXA [Concomitant]
  8. PRILOSEC [Concomitant]
  9. LORTAB [Concomitant]
  10. ATORVASTATIN CALCIUM [Concomitant]

REACTIONS (19)
  - Heart rate abnormal [Unknown]
  - Cardiac pacemaker insertion [Unknown]
  - Injection site rash [Unknown]
  - Weight decreased [Not Recovered/Not Resolved]
  - Pain [Unknown]
  - Abdominal distension [Unknown]
  - Dysphonia [Unknown]
  - Dry throat [Unknown]
  - Pharyngitis [Unknown]
  - Muscle spasms [Unknown]
  - Pyrexia [Unknown]
  - Full blood count decreased [Unknown]
  - Insomnia [Unknown]
  - Fatigue [Unknown]
  - Nausea [Unknown]
  - Insomnia [Unknown]
  - Dry mouth [Unknown]
  - Insomnia [Unknown]
  - Dysgeusia [Unknown]
